FAERS Safety Report 5229023-X (Version None)
Quarter: 2007Q1

REPORT INFORMATION
  Report Type: 
  Country: None (occurrence: None)
  Receive Date: 20061201
  Receipt Date: 20060915
  Transmission Date: 20070707
  Serious: No
  Sender: FDA-Public Use
  Company Number: US200609004024

PATIENT
  Age: 75 Year
  Sex: Female
  Weight: 54 kg

DRUGS (8)
  1. CYMBALTA [Suspect]
     Indication: CRYING
     Dosage: 30 MG ORAL
     Route: 048
     Dates: start: 20060908, end: 20060912
  2. DILTIAZEM [Concomitant]
  3. CAPTOPRIL [Concomitant]
  4. LORAZEPAM [Concomitant]
  5. TEMAZEPAM [Concomitant]
  6. ATENOLOL [Concomitant]
  7. ACTONEL /USA/ (RISEDRONATE SODIUM) [Concomitant]
  8. ASPIRIN [Concomitant]

REACTIONS (5)
  - DIARRHOEA [None]
  - FLATULENCE [None]
  - SOCIAL AVOIDANT BEHAVIOUR [None]
  - STOMACH DISCOMFORT [None]
  - WEIGHT DECREASED [None]
